FAERS Safety Report 4636658-1 (Version None)
Quarter: 2005Q2

REPORT INFORMATION
  Report Type: 
  Country: None (occurrence: None)
  Receive Date: 20050328
  Receipt Date: 20041207
  Transmission Date: 20051028
  Serious: No
  Sender: FDA-Public Use
  Company Number: USA041285498

PATIENT
  Age: 3 Year
  Sex: Female
  Weight: 20 kg

DRUGS (1)
  1. STRATTERA [Suspect]
     Dosage: 18 MG/3 DAY
     Dates: start: 20041207, end: 20041207

REACTIONS (2)
  - ACCIDENTAL OVERDOSE [None]
  - MEDICATION ERROR [None]
